FAERS Safety Report 8310491-1 (Version None)
Quarter: 2012Q2

REPORT INFORMATION
  Report Type: 
  Country: None (occurrence: None)
  Receive Date: 20120425
  Receipt Date: 20120423
  Transmission Date: 20120825
  Serious: Yes (Other)
  Sender: FDA-Public Use
  Company Number: FR-ROCHE-1054292

PATIENT
  Age: 29 Year
  Sex: Male

DRUGS (7)
  1. VALGANCICLOVIR [Suspect]
     Indication: CYTOMEGALOVIRUS INFECTION
     Route: 048
  2. IMURAN [Concomitant]
     Route: 048
  3. PREDNISOLONE [Concomitant]
     Route: 048
     Dates: start: 20120323
  4. CACIT VITAMINE D3 [Concomitant]
  5. GANCICLOVIR SODIUM [Suspect]
     Indication: CYTOMEGALOVIRUS INFECTION
     Dates: start: 20120323, end: 20120326
  6. LOVENOX [Concomitant]
  7. RIFAMPIN AND ISONIAZID [Concomitant]
     Route: 048
     Dates: start: 20120323

REACTIONS (2)
  - ATRIAL FIBRILLATION [None]
  - ARRHYTHMIA [None]
